FAERS Safety Report 7241233-9 (Version None)
Quarter: 2011Q1

REPORT INFORMATION
  Report Type: 
  Country: None (occurrence: None)
  Receive Date: 20110124
  Receipt Date: 20110112
  Transmission Date: 20110831
  Serious: Yes (Hospitalization)
  Sender: FDA-Public Use
  Company Number: A0835220A

PATIENT
  Age: 60 Year
  Sex: Male
  Weight: 113.6 kg

DRUGS (10)
  1. PRILOSEC [Concomitant]
  2. WELLBUTRIN [Concomitant]
  3. SINEMET [Concomitant]
  4. NEURONTIN [Concomitant]
  5. XANAX [Concomitant]
  6. AVANDIA [Suspect]
     Indication: DIABETES MELLITUS
     Dosage: 4MG TWICE PER DAY
     Route: 048
     Dates: start: 20000101, end: 20020101
  7. LOPRESSOR [Concomitant]
  8. GLYNASE [Concomitant]
  9. TRICOR [Concomitant]
  10. REMERON [Concomitant]

REACTIONS (2)
  - CARDIAC DISORDER [None]
  - MYOCARDIAL INFARCTION [None]
